FAERS Safety Report 6985594-4 (Version None)
Quarter: 2010Q3

REPORT INFORMATION
  Report Type: 
  Country: None (occurrence: None)
  Receive Date: 20100915
  Receipt Date: 20100814
  Transmission Date: 20110219
  Serious: No
  Sender: FDA-Public Use
  Company Number: A0876242A

PATIENT
  Age: 42 Year
  Sex: Male

DRUGS (1)
  1. NICORETTE (MINT) [Suspect]
     Route: 002
     Dates: start: 20100501

REACTIONS (2)
  - COLD SWEAT [None]
  - NAUSEA [None]
